FAERS Safety Report 9043517 (Version 1)
Quarter: 2013Q1

REPORT INFORMATION
  Report Type: Report from Study
  Country: US (occurrence: US)
  Receive Date: 20130129
  Receipt Date: 20130129
  Transmission Date: 20140127
  Serious: No
  Sender: FDA-Public Use
  Company Number: US-ABBOTT-12P-163-0909648-00

PATIENT
  Age: 59 None
  Sex: Male
  Weight: 74.91 kg

DRUGS (6)
  1. HUMIRA 40 MG/0.8 ML PEN [Suspect]
     Indication: RHEUMATOID ARTHRITIS
     Dates: start: 201112
  2. METHOTREXATE [Concomitant]
     Indication: RHEUMATOID ARTHRITIS
  3. FENTANYL [Concomitant]
     Indication: NECK PAIN
     Dosage: PATCH
  4. HYDROCODONE W/ACETAMINOPHEN [Concomitant]
     Indication: NECK PAIN
  5. LEXAPRO [Concomitant]
     Indication: ANXIETY
  6. ALPRAZOLAM [Concomitant]
     Indication: ANXIETY

REACTIONS (3)
  - Arthralgia [Not Recovered/Not Resolved]
  - Arthralgia [Not Recovered/Not Resolved]
  - Tendonitis [Not Recovered/Not Resolved]
